FAERS Safety Report 11194129 (Version 3)
Quarter: 2015Q2

REPORT INFORMATION
  Report Type: Spontaneous
  Country: US (occurrence: US)
  Receive Date: 20150616
  Receipt Date: 20150629
  Transmission Date: 20150821
  Serious: Yes (Hospitalization, Disabling, Other)
  Sender: FDA-Public Use
  Company Number: US-009507513-1204USA00484

PATIENT
  Sex: Female
  Weight: 62.13 kg

DRUGS (3)
  1. FOSAMAX [Suspect]
     Active Substance: ALENDRONATE SODIUM
     Dosage: 70 MG, QW
     Route: 048
     Dates: start: 20050330, end: 200807
  2. FOSAMAX [Suspect]
     Active Substance: ALENDRONATE SODIUM
     Indication: OSTEOPENIA
     Dosage: 70 MG, QW
     Route: 048
     Dates: start: 20020131, end: 200308
  3. ESTRACE [Concomitant]
     Active Substance: ESTRADIOL
     Indication: HORMONE THERAPY
     Dosage: 2 MG, QD
     Dates: end: 2010

REACTIONS (31)
  - Arthralgia [Unknown]
  - Intramedullary rod insertion [Unknown]
  - Bone disorder [Not Recovered/Not Resolved]
  - Vulvovaginal mycotic infection [Unknown]
  - Oophorectomy [Unknown]
  - Drug hypersensitivity [Unknown]
  - Rash [Unknown]
  - Hip fracture [Unknown]
  - Adverse event [Unknown]
  - Night sweats [Unknown]
  - Low turnover osteopathy [Not Recovered/Not Resolved]
  - Fungal infection [Unknown]
  - Vaginitis bacterial [Unknown]
  - Hot flush [Unknown]
  - Removal of internal fixation [Unknown]
  - Sinus disorder [Not Recovered/Not Resolved]
  - Fatigue [Unknown]
  - Headache [Unknown]
  - Cholecystectomy [Recovered/Resolved]
  - Genital infection bacterial [Unknown]
  - Osteoporosis [Not Recovered/Not Resolved]
  - Fracture nonunion [Recovering/Resolving]
  - Stress fracture [Unknown]
  - Spinal fracture [Unknown]
  - Depression [Unknown]
  - Femur fracture [Recovering/Resolving]
  - Haemorrhagic anaemia [Recovering/Resolving]
  - Fall [Unknown]
  - Melanocytic naevus [Unknown]
  - Vulvovaginal candidiasis [Unknown]
  - Vulvovaginal dryness [Unknown]

NARRATIVE: CASE EVENT DATE: 2006
